FAERS Safety Report 9684669 (Version 1)
Quarter: 2013Q4

REPORT INFORMATION
  Report Type: Spontaneous
  Country: DE (occurrence: DE)
  Receive Date: 20131112
  Receipt Date: 20131112
  Transmission Date: 20140711
  Serious: Yes (Other)
  Sender: FDA-Public Use
  Company Number: DE-ELI_LILLY_AND_COMPANY-DE201310010223

PATIENT
  Age: 73 Year
  Sex: Male

DRUGS (4)
  1. FORSTEO [Suspect]
     Indication: PRODUCT USED FOR UNKNOWN INDICATION
     Dosage: UNK, UNKNOWN
     Route: 065
     Dates: start: 201305
  2. ALPHAGAN [Suspect]
     Indication: PRODUCT USED FOR UNKNOWN INDICATION
     Dosage: UNK, UNKNOWN
     Route: 065
  3. LATANOPROST [Suspect]
     Indication: PRODUCT USED FOR UNKNOWN INDICATION
     Dosage: UNK, UNKNOWN
     Route: 065
  4. TAFLUPROST [Concomitant]
     Indication: GLAUCOMA
     Dosage: UNK, UNKNOWN
     Route: 065

REACTIONS (3)
  - Hypertensive crisis [Unknown]
  - Drug dose omission [Unknown]
  - Heart rate increased [Unknown]
